FAERS Safety Report 25165536 (Version 1)
Quarter: 2025Q2

REPORT INFORMATION
  Report Type: Spontaneous
  Country: FR (occurrence: FR)
  Receive Date: 20250407
  Receipt Date: 20250407
  Transmission Date: 20250716
  Serious: Yes (Hospitalization, Other)
  Sender: CHEPLAPHARM
  Company Number: None

PATIENT
  Age: 79 Year
  Sex: Female
  Weight: 83.699 kg

DRUGS (16)
  1. CANDESARTAN [Suspect]
     Active Substance: CANDESARTAN
     Indication: Hypertension
     Dosage: DAILY DOSE: 8 MILLIGRAM
     Route: 048
     Dates: start: 2009, end: 20250201
  2. URAPIDIL [Suspect]
     Active Substance: URAPIDIL
     Indication: Hypertension
  3. URAPIDIL [Suspect]
     Active Substance: URAPIDIL
     Indication: Hypertension
     Dosage: URAPIDIL INCREASED TO 10MG/H?DAILY DOSE: 240 MILLIGRAM
  4. CLONAZEPAM [Suspect]
     Active Substance: CLONAZEPAM
     Indication: Insomnia
     Dosage: DRINKABLE SOLUTION IN DROPS?DAILY DOSE: 32 DROP
     Route: 048
  5. AMBISOME [Suspect]
     Active Substance: AMPHOTERICIN B
     Indication: Rhinocerebral mucormycosis
     Dosage: POWDER FOR LIPOSOME SUSPENSION FOR INFUSION /AMBISOME (AMPHOTERICIN) 5MG/KG/D
     Route: 042
     Dates: start: 20250130, end: 20250204
  6. TRESIBA [Concomitant]
     Active Substance: INSULIN DEGLUDEC
     Indication: Type 2 diabetes mellitus
     Dosage: DAILY DOSE: 50 IU (INTERNATIONAL UNIT)
     Route: 058
  7. HUMALOG [Concomitant]
     Active Substance: INSULIN LISPRO
     Indication: Type 2 diabetes mellitus
     Dosage: SOLUTION 1.5 ML CARTRIDGE FOR INJECTION ?DAILY DOSE: 14 IU (INTERNATIONAL UNIT)
     Route: 058
  8. SIMVASTATIN [Concomitant]
     Active Substance: SIMVASTATIN
     Indication: Dyslipidaemia
     Dosage: DAILY DOSE: 20 MILLIGRAM
     Route: 048
     Dates: end: 20250207
  9. ZOPICLONE [Concomitant]
     Active Substance: ZOPICLONE
     Indication: Insomnia
     Dosage: DAILY DOSE: 7.5 MILLIGRAM
     Route: 048
  10. MELATONIN [Concomitant]
     Active Substance: MELATONIN
     Indication: Insomnia
     Dosage: EXTENDED-RELEASE TABLET?DAILY DOSE: 5 MILLIGRAM
     Route: 048
  11. ESCITALOPRAM [Concomitant]
     Active Substance: ESCITALOPRAM OXALATE
     Indication: Mixed anxiety and depressive disorder
     Dosage: DAILY DOSE: 5 MILLIGRAM
     Route: 048
  12. CHOLECALCIFEROL [Concomitant]
     Active Substance: CHOLECALCIFEROL
     Indication: Vitamin supplementation
     Dosage: ORAL SOLUTION IN AMPOULE
     Route: 048
  13. GABAPENTIN [Concomitant]
     Active Substance: GABAPENTIN
     Indication: Diabetic neuropathy
     Dosage: DAILY DOSE: 900 MILLIGRAM
     Route: 048
  14. TRAMADOL HYDROCHLORIDE [Concomitant]
     Active Substance: TRAMADOL HYDROCHLORIDE
     Indication: Diabetic neuropathy
     Route: 048
  15. METFORMIN [Concomitant]
     Active Substance: METFORMIN HYDROCHLORIDE
  16. AMLODIPINE [Concomitant]
     Active Substance: AMLODIPINE BESYLATE
     Dosage: 5MG 1-0-0?DAILY DOSE: 5 MILLIGRAM

REACTIONS (14)
  - Acute kidney injury [Not Recovered/Not Resolved]
  - Diabetic metabolic decompensation [Unknown]
  - Mucormycosis [Unknown]
  - Enterococcal infection [Unknown]
  - Meningitis pneumococcal [Unknown]
  - Hypertensive crisis [Unknown]
  - Pulmonary oedema [Unknown]
  - Fusobacterium infection [Unknown]
  - Human herpesvirus 6 infection [Unknown]
  - Normocytic anaemia [Unknown]
  - Abscess [Unknown]
  - Osteitis [Unknown]
  - Fracture [Unknown]
  - Off label use [Not Recovered/Not Resolved]

NARRATIVE: CASE EVENT DATE: 20240801
